FAERS Safety Report 8150637 (Version 2)
Quarter: 2013Q1

REPORT INFORMATION
  Report Type: Spontaneous
  Country: US (occurrence: US)
  Receive Date: 20110922
  Receipt Date: 20130214
  Transmission Date: 20140127
  Serious: Yes (Other)
  Sender: FDA-Public Use
  Company Number: US-ASTRAZENECA-2011SE12600

PATIENT
  Age: 17130 Day
  Sex: Female

DRUGS (11)
  1. SEROQUEL [Suspect]
     Dosage: 100 TO 200 MG
     Route: 048
     Dates: start: 20011221
  2. SEROQUEL [Suspect]
     Dosage: 50 MG, 1 IN THE MORNING AND 2 AT BEDTIME
     Route: 048
     Dates: start: 20020410
  3. TEMAZEPAM [Concomitant]
     Dates: start: 20011221
  4. DEPAKOTE [Concomitant]
     Dates: start: 20020423
  5. RISPERDAL [Concomitant]
     Dates: start: 20020701
  6. ACCUPRIL [Concomitant]
     Dates: start: 20020822
  7. DILANTIN [Concomitant]
     Dates: start: 20020822
  8. AVANDIA [Concomitant]
     Dates: start: 20020822
  9. GEODON [Concomitant]
     Dates: start: 20020830
  10. NORVASC [Concomitant]
     Dates: start: 20020830
  11. BENZTROPINE MES [Concomitant]
     Dosage: 1 M
     Dates: start: 20020830

REACTIONS (3)
  - Pancreatitis [Unknown]
  - Diabetic coma [Unknown]
  - Type 2 diabetes mellitus [Unknown]
